FAERS Safety Report 5513556-2 (Version None)
Quarter: 2007Q4

REPORT INFORMATION
  Report Type: 
  Country: None (occurrence: None)
  Receive Date: 20071108
  Receipt Date: 20071030
  Transmission Date: 20080405
  Serious: Yes (Other)
  Sender: FDA-Public Use
  Company Number: 2007AL004629

PATIENT
  Age: 27 Year
  Sex: Female

DRUGS (3)
  1. DIAZEPAM [Suspect]
  2. OLANZAPINE [Concomitant]
  3. METHADONE [Concomitant]

REACTIONS (4)
  - DRUG EXPOSURE DURING PREGNANCY [None]
  - DRUG INTERACTION [None]
  - INTRA-UTERINE DEATH [None]
  - PREGNANCY [None]
